FAERS Safety Report 8781786 (Version 2)
Quarter: 2012Q4

REPORT INFORMATION
  Report Type: Report from Study
  Country: NL (occurrence: NL)
  Receive Date: 20120913
  Receipt Date: 20120925
  Transmission Date: 20130627
  Serious: Yes (Hospitalization)
  Sender: FDA-Public Use
  Company Number: NL-BRISTOL-MYERS SQUIBB COMPANY-16833550

PATIENT
  Age: 64 Year
  Sex: Male

DRUGS (1)
  1. IPILIMUMAB [Suspect]
     Indication: METASTATIC MALIGNANT MELANOMA
     Dosage: No of courses:2,3mg/kg vs 10mg/kg
last dose was taken on 24jul2012
     Route: 042
     Dates: start: 20120702

REACTIONS (2)
  - Diarrhoea [Unknown]
  - Colitis [Unknown]
